FAERS Safety Report 22376526 (Version 1)
Quarter: 2023Q2

REPORT INFORMATION
  Report Type: Spontaneous
  Country: US (occurrence: US)
  Receive Date: 20230528
  Receipt Date: 20230528
  Transmission Date: 20230721
  Serious: Yes (Other)
  Sender: FDA-Public Use
  Company Number: US-drreddys-SPO/USA/23/0165384

PATIENT
  Age: 21 Year

DRUGS (1)
  1. ACCUTANE [Suspect]
     Active Substance: ISOTRETINOIN
     Indication: Product used for unknown indication
     Dosage: RMA ISSUE DATE :21 MARCH 2023 03:28:09 PM AND 25 APRIL 2023 02:33:44 PM

REACTIONS (2)
  - Purging [Unknown]
  - Anxiety [Unknown]
